FAERS Safety Report 16893344 (Version 1)
Quarter: 2019Q4

REPORT INFORMATION
  Report Type: Spontaneous
  Country: US (occurrence: US)
  Receive Date: 20191008
  Receipt Date: 20191008
  Transmission Date: 20200122
  Serious: No
  Sender: FDA-Public Use
  Company Number: US-TEVA-2019-US-1119552

PATIENT
  Sex: Female

DRUGS (9)
  1. AUSTEDO [Suspect]
     Active Substance: DEUTETRABENAZINE
     Dosage: 18 MILLIGRAM DAILY;
     Route: 048
     Dates: start: 201908
  2. PRENATAL [Concomitant]
     Active Substance: VITAMINS
  3. BIOTIN [Concomitant]
     Active Substance: BIOTIN
  4. SALINE [Concomitant]
     Active Substance: SODIUM CHLORIDE
  5. VITAMIN E [Concomitant]
     Active Substance: .ALPHA.-TOCOPHEROL
  6. ZINC. [Concomitant]
     Active Substance: ZINC
  7. MELATONIN [Concomitant]
     Active Substance: MELATONIN
  8. VITAMIN B6 [Concomitant]
     Active Substance: PYRIDOXINE HYDROCHLORIDE
  9. VITAMIN C [Concomitant]
     Active Substance: ASCORBIC ACID

REACTIONS (6)
  - Blood pressure increased [Unknown]
  - Ocular discomfort [Unknown]
  - Eye pain [Unknown]
  - Nasal dryness [Unknown]
  - Headache [Unknown]
  - Head discomfort [Unknown]
